FAERS Safety Report 4977813-0 (Version None)
Quarter: 2006Q1

REPORT INFORMATION
  Report Type: 
  Country: None (occurrence: None)
  Receive Date: 20060215
  Receipt Date: 20050818
  Transmission Date: 20060701
  Serious: Yes (Other)
  Sender: FDA-Public Use
  Company Number: MC200500747

PATIENT
  Age: 70 Year
  Sex: Female
  Weight: 73 kg

DRUGS (6)
  1. ANGIOMAX [Suspect]
     Dosage: 1 MG/KG, BOLUS LOADING DOSE
  2. ANGIOMAX [Suspect]
     Dosage: 2.5 MG/KG, IV DRIP
     Route: 041
  3. ANGIOMAX [Suspect]
     Dosage: 3.30 MG, BOLUS
  4. ANGIOMAX [Suspect]
     Dosage: 30 MG, BOLUS
  5. HOLISTIC MEDICINE() [Suspect]
  6. UNKNOWN HERB() [Suspect]

REACTIONS (2)
  - COAGULATION TIME ABNORMAL [None]
  - HAEMORRHAGE [None]
